FAERS Safety Report 5976497-2 (Version None)
Quarter: 2008Q4

REPORT INFORMATION
  Report Type: 
  Country: None (occurrence: None)
  Receive Date: 20081126
  Receipt Date: 20081114
  Transmission Date: 20090506
  Serious: Yes (Hospitalization)
  Sender: FDA-Public Use
  Company Number: 2008002683

PATIENT
  Age: 57 Year
  Sex: Male
  Weight: 89.9 kg

DRUGS (5)
  1. ERLOTINIB (ERLOTINIB) (TABLE) (ERLOTINIB) [Suspect]
     Indication: RENAL CELL CARCINOMA
     Dosage: (50 MG,QD), ORAL
     Route: 048
     Dates: start: 20070301, end: 20080917
  2. SU-O11, 248 [Suspect]
     Indication: RENAL CELL CARCINOMA
     Dosage: (50 MG,QD), ORAL
     Route: 048
     Dates: start: 20070301, end: 20080917
  3. ACETAMINOPHEN [Concomitant]
  4. AZOR [Concomitant]
  5. NEXIUM [Concomitant]

REACTIONS (3)
  - BLADDER DILATATION [None]
  - CHOLECYSTITIS [None]
  - GALLBLADDER DISORDER [None]
